FAERS Safety Report 5081803-X (Version None)
Quarter: 2006Q3

REPORT INFORMATION
  Report Type: 
  Country: None (occurrence: None)
  Receive Date: 20060816
  Receipt Date: 20060809
  Transmission Date: 20061208
  Serious: Yes (Disabling)
  Sender: FDA-Public Use
  Company Number: FR-GLAXOSMITHKLINE-B0433775A

PATIENT
  Age: 65 Year
  Sex: Female
  Weight: 65 kg

DRUGS (2)
  1. DEROXAT [Suspect]
     Indication: DYSTHYMIC DISORDER
     Dosage: 1UNIT PER DAY
     Route: 048
     Dates: start: 19960615
  2. LAROXYL [Suspect]
     Indication: DYSTHYMIC DISORDER
     Dosage: 1UNIT PER DAY
     Route: 048
     Dates: start: 19760615, end: 19960615

REACTIONS (2)
  - BLEPHAROSPASM [None]
  - DYSKINESIA [None]
